FAERS Safety Report 8104333-7 (Version None)
Quarter: 2012Q1

REPORT INFORMATION
  Report Type: 
  Country: None (occurrence: None)
  Receive Date: 20120130
  Receipt Date: 20120120
  Transmission Date: 20120608
  Serious: Yes (Hospitalization)
  Sender: FDA-Public Use
  Company Number: US-BAYER-201035798NA

PATIENT
  Age: 31 Year
  Sex: Female
  Weight: 106.82 kg

DRUGS (21)
  1. YASMIN [Suspect]
     Dosage: PHARMACY RECORDS: DISPENSED FROM 13-MAR-2007 THROUGH 11-AUG-2007
     Route: 048
  2. LEVOTHYROXINE SODIUM [Concomitant]
     Route: 065
     Dates: start: 20010901
  3. HYDROCODONE BITARTRATE AND ACETAMINOPHEN [Concomitant]
     Dosage: 10 - 650 MG
     Route: 048
  4. LORCET-HD [Concomitant]
     Route: 065
  5. AMITRIPTYLINE HCL [Concomitant]
     Route: 048
  6. TIZANIDINE HYDROCHLORIDE [Concomitant]
     Route: 048
  7. NAPROXEN (ALEVE) [Concomitant]
     Dosage: 20 DAYS PRIOR TO INJURY
     Route: 065
  8. BACLOFEN [Concomitant]
     Route: 048
  9. YAZ [Suspect]
     Route: 048
     Dates: start: 20070101, end: 20070818
  10. IMMUNE GLOBULIN NOS [Concomitant]
     Indication: SELECTIVE IGG SUBCLASS DEFICIENCY
     Route: 042
     Dates: start: 20060201
  11. ZYRTEC [Concomitant]
     Route: 065
  12. TOPAMAX [Concomitant]
     Route: 048
     Dates: start: 20020901
  13. ZANTAC [Concomitant]
     Route: 065
  14. OXYCODONE HCL [Concomitant]
     Route: 048
  15. PROMETHAZINE [Concomitant]
     Route: 048
  16. FLONASE [Concomitant]
     Route: 065
  17. ZANAFLEX [Concomitant]
     Route: 065
  18. HYDROCODONE BITARTRATE AND ACETAMINOPHEN [Concomitant]
     Dosage: 10-500 MG
     Route: 048
  19. ELAVIL [Concomitant]
     Route: 065
  20. HYDROCODONE BITARTRATE + ACETAMINOPHEN [Concomitant]
     Dosage: 10-500 MG
     Route: 048
  21. DROSPIRENONE AND ETHINYL ESTRADIOL [Suspect]
     Route: 048

REACTIONS (6)
  - HOMANS' SIGN POSITIVE [None]
  - INJURY [None]
  - DEEP VEIN THROMBOSIS [None]
  - PAIN IN EXTREMITY [None]
  - OEDEMA PERIPHERAL [None]
  - ARTHRALGIA [None]
